FAERS Safety Report 8829707 (Version 1)
Quarter: 2012Q4

REPORT INFORMATION
  Report Type: 
  Country: US (occurrence: US)
  Receive Date: 20121008
  Receipt Date: 20121008
  Transmission Date: 20130627
  Serious: No
  Sender: FDA-Public Use
  Company Number: US-ASTRAZENECA-2012SE75729

PATIENT
  Age: 68 Year
  Sex: Female
  Weight: 88.5 kg

DRUGS (9)
  1. PULMICORT FLEXHALER [Suspect]
     Indication: CHRONIC OBSTRUCTIVE PULMONARY DISEASE
     Dosage: 90MCG, ONE PUFF TWO TIMES A DAY
     Route: 055
  2. PULMICORT FLEXHALER [Suspect]
     Indication: CHRONIC OBSTRUCTIVE PULMONARY DISEASE
     Dosage: 90MCG, TWO PUFFS TWO TIMES A DAY
     Route: 055
     Dates: start: 20120928, end: 20120930
  3. OMEPRAZOLE [Concomitant]
     Indication: HIATUS HERNIA
  4. METFORMIN [Concomitant]
     Indication: DIABETES MELLITUS
  5. LISINOPRIL HCTZ [Concomitant]
     Indication: HYPERTENSION
  6. LIPITOR [Concomitant]
     Indication: BLOOD CHOLESTEROL
  7. FENOFIBRATE [Concomitant]
     Indication: BLOOD CHOLESTEROL
  8. VICODIN ES [Concomitant]
     Indication: BACK DISORDER
  9. AMBIEN [Concomitant]
     Indication: BACK DISORDER

REACTIONS (3)
  - No therapeutic response [Unknown]
  - Drug dose omission [Unknown]
  - Off label use [Unknown]
